FAERS Safety Report 19722176 (Version 2)
Quarter: 2021Q3

REPORT INFORMATION
  Report Type: Spontaneous
  Country: US (occurrence: US)
  Receive Date: 20210819
  Receipt Date: 20210914
  Transmission Date: 20211014
  Serious: Yes (Other)
  Sender: FDA-Public Use
  Company Number: US-NOVEN PHARMACEUTICALS, INC.-2021-NOV-US003640

PATIENT
  Age: 57 Year
  Sex: Female

DRUGS (1)
  1. COMBIPATCH [Suspect]
     Active Substance: ESTRADIOL\NORETHINDRONE ACETATE
     Indication: MENOPAUSE
     Dosage: 50/140 (UNITS UNSPECIFIED), UNKNOWN
     Route: 062
     Dates: start: 20210710, end: 2021

REACTIONS (5)
  - Device issue [Recovered/Resolved]
  - Product adhesion issue [Recovered/Resolved]
  - Rash [Unknown]
  - Product residue present [Recovered/Resolved]
  - Application site irritation [Unknown]

NARRATIVE: CASE EVENT DATE: 2021
